FAERS Safety Report 6988053-8 (Version None)
Quarter: 2010Q3

REPORT INFORMATION
  Report Type: 
  Country: None (occurrence: None)
  Receive Date: 20100916
  Receipt Date: 20100910
  Transmission Date: 20110219
  Serious: Yes (Death)
  Sender: FDA-Public Use
  Company Number: A0873886A

PATIENT
  Age: 86 Year
  Sex: Female
  Weight: 62.7 kg

DRUGS (1)
  1. VOTRIENT [Suspect]
     Indication: RENAL CELL CARCINOMA
     Dosage: 800MG PER DAY
     Route: 065
     Dates: start: 20100715, end: 20100726

REACTIONS (5)
  - HEADACHE [None]
  - METASTATIC RENAL CELL CARCINOMA [None]
  - MULTI-ORGAN FAILURE [None]
  - OESOPHAGITIS [None]
  - PAIN IN JAW [None]
